FAERS Safety Report 8074307-3 (Version None)
Quarter: 2011Q4

REPORT INFORMATION
  Report Type: 
  Country: None (occurrence: None)
  Receive Date: 20111221
  Receipt Date: 20110518
  Transmission Date: 20120403
  Serious: Yes (Other)
  Sender: FDA-Public Use
  Company Number: PHHY2011US30382

PATIENT
  Sex: Female
  Weight: 48.1 kg

DRUGS (9)
  1. ZANTAC [Concomitant]
  2. FOLIC ACID [Concomitant]
  3. COUMADIN [Concomitant]
  4. LORATADINE [Concomitant]
  5. EXJADE [Suspect]
     Indication: HAEMOLYTIC ANAEMIA
     Dosage: 1375 MG, DAILY, ORAL
     Route: 048
     Dates: start: 20100208
  6. LASIX [Concomitant]
  7. ASPIRIN [Concomitant]
  8. DIGOXIN [Concomitant]
  9. METOPROLOL TARTRATE [Concomitant]

REACTIONS (1)
  - RENAL IMPAIRMENT [None]
